FAERS Safety Report 10202437 (Version 1)
Quarter: 2014Q2

REPORT INFORMATION
  Report Type: Spontaneous
  Country: DE (occurrence: GB)
  Receive Date: 20140528
  Receipt Date: 20140528
  Transmission Date: 20141212
  Serious: Yes (Life-Threatening, Disabling, Other)
  Sender: FDA-Public Use
  Company Number: GB-FRI-1000067572

PATIENT
  Age: 90 Year
  Sex: Female
  Weight: 58.3 kg

DRUGS (9)
  1. MEMANTINE [Suspect]
     Indication: DEMENTIA ALZHEIMER^S TYPE
     Dosage: 20 MG
     Route: 048
  2. ADCAL D3 [Concomitant]
  3. ALENDRONIC ACID [Concomitant]
  4. BETAMETHASONE VALERATE [Concomitant]
  5. DOCUSATE [Concomitant]
  6. FERROUS FUMARATE [Concomitant]
  7. MIRTAZAPINE [Concomitant]
  8. PARACETAMOL [Concomitant]
  9. TRAZODONE [Concomitant]

REACTIONS (1)
  - Deep vein thrombosis [Recovering/Resolving]
